FAERS Safety Report 5001004-0 (Version None)
Quarter: 2006Q2

REPORT INFORMATION
  Report Type: 
  Country: None (occurrence: None)
  Receive Date: 20060512
  Receipt Date: 20060508
  Transmission Date: 20061013
  Serious: Yes (Other)
  Sender: FDA-Public Use
  Company Number: US-GLAXOSMITHKLINE-A0604683A

PATIENT
  Age: 36 Year
  Sex: Female

DRUGS (5)
  1. VALTREX [Suspect]
     Dosage: 500MG PER DAY
     Route: 048
  2. ESTRACE [Concomitant]
  3. WELLBUTRIN [Concomitant]
  4. AMBIEN [Concomitant]
  5. IMITREX [Concomitant]

REACTIONS (1)
  - CUTANEOUS VASCULITIS [None]
